FAERS Safety Report 9192970 (Version 2)
Quarter: 2013Q2

REPORT INFORMATION
  Report Type: Spontaneous
  Country: US (occurrence: None)
  Receive Date: 20120703
  Receipt Date: 20121031
  Transmission Date: 20140414
  Serious: Yes (Other)
  Sender: FDA-Public Use
  Company Number: PHEH2012US009817

PATIENT
  Age: 27 Year
  Sex: Female
  Weight: 44 kg

DRUGS (5)
  1. GILENYA [Suspect]
     Indication: MULTIPLE SCLEROSIS
     Route: 048
     Dates: start: 20111216, end: 201102
  2. METAXALONE (METAXALONE) [Concomitant]
  3. NAPROXEN (NAPROXEN) [Concomitant]
  4. GABAPENTIN (GABAPENTIN) [Concomitant]
  5. FEXOFENADINE (FEXOFENADINE) (FEXOFENADINE) [Concomitant]

REACTIONS (2)
  - Alopecia [None]
  - Inappropriate schedule of drug administration [None]
